FAERS Safety Report 12541067 (Version 5)
Quarter: 2017Q1

REPORT INFORMATION
  Report Type: Spontaneous
  Country: US (occurrence: US)
  Receive Date: 20160708
  Receipt Date: 20170323
  Transmission Date: 20170428
  Serious: Yes (Life-Threatening, Hospitalization)
  Sender: FDA-Public Use
  Company Number: US-JNJFOC-20160703269

PATIENT
  Age: 73 Year
  Sex: Male
  Weight: 89.34 kg

DRUGS (12)
  1. NITROSTAT [Concomitant]
     Active Substance: NITROGLYCERIN
     Route: 065
     Dates: start: 20090209, end: 20160417
  2. ACETYLSALICYLIC ACID W/ASCORBIC ACID [Concomitant]
     Route: 065
     Dates: start: 201407, end: 20160417
  3. METOPROLOL. [Concomitant]
     Active Substance: METOPROLOL
     Route: 065
     Dates: start: 20160209, end: 20160417
  4. LISINOPRIL. [Concomitant]
     Active Substance: LISINOPRIL
     Route: 065
     Dates: start: 20090209
  5. ADVIL [Concomitant]
     Active Substance: IBUPROFEN
     Route: 065
     Dates: start: 20160116, end: 20160417
  6. AMIODARONE [Concomitant]
     Active Substance: AMIODARONE
     Route: 065
     Dates: start: 20151030, end: 20160417
  7. XARELTO [Suspect]
     Active Substance: RIVAROXABAN
     Indication: VENTRICULAR TACHYCARDIA
     Route: 048
     Dates: start: 20160419, end: 20160428
  8. CANAKINUMAB [Suspect]
     Active Substance: CANAKINUMAB
     Indication: CARDIOVASCULAR EVENT PROPHYLAXIS
     Route: 058
  9. CRESTOR [Concomitant]
     Active Substance: ROSUVASTATIN CALCIUM
     Route: 065
     Dates: start: 20090209, end: 20160417
  10. DICLOFENAC [Concomitant]
     Active Substance: DICLOFENAC
     Route: 065
     Dates: start: 20160116, end: 20160417
  11. ATENOLOL. [Concomitant]
     Active Substance: ATENOLOL
     Route: 065
     Dates: start: 20090209
  12. OMEPRAZOLE. [Concomitant]
     Active Substance: OMEPRAZOLE
     Route: 065
     Dates: start: 20090209, end: 20160417

REACTIONS (5)
  - Product use issue [Unknown]
  - Gastrointestinal angiectasia [Unknown]
  - Off label use [Unknown]
  - Dizziness [Unknown]
  - Gastrointestinal haemorrhage [Recovered/Resolved]

NARRATIVE: CASE EVENT DATE: 20160419
